FAERS Safety Report 10029379 (Version 2)
Quarter: 2014Q1

REPORT INFORMATION
  Report Type: Report from Study
  Country: US (occurrence: US)
  Receive Date: 20140322
  Receipt Date: 20140322
  Transmission Date: 20141002
  Serious: Yes (Other)
  Sender: FDA-Public Use
  Company Number: PHEH2013US019669

PATIENT
  Age: 36 Year
  Sex: Female
  Weight: 56.69 kg

DRUGS (6)
  1. GILENYA [Suspect]
     Indication: MULTIPLE SCLEROSIS
     Dosage: 0.5 MG, QD
     Route: 048
     Dates: start: 20130917
  2. LEVOTHYROXINE [Concomitant]
  3. RITALIN [Concomitant]
  4. WELLBUTRIN [Concomitant]
  5. VIT B12 [Concomitant]
  6. VIT D [Concomitant]

REACTIONS (9)
  - Central nervous system lesion [Not Recovered/Not Resolved]
  - Hot flush [Unknown]
  - Chest discomfort [Not Recovered/Not Resolved]
  - Feeling cold [Unknown]
  - Musculoskeletal pain [Not Recovered/Not Resolved]
  - Electrocardiogram abnormal [Unknown]
  - Fatigue [Not Recovered/Not Resolved]
  - Pain in extremity [Not Recovered/Not Resolved]
  - Eye pain [Not Recovered/Not Resolved]
